FAERS Safety Report 4757146-8 (Version None)
Quarter: 2005Q3

REPORT INFORMATION
  Report Type: 
  Country: None (occurrence: None)
  Receive Date: 20050829
  Receipt Date: 20050819
  Transmission Date: 20060218
  Serious: Yes (Hospitalization, Other)
  Sender: FDA-Public Use
  Company Number: KII-2005-0018256

PATIENT
  Age: 51 Year
  Sex: Female

DRUGS (4)
  1. OXYCONTIN [Suspect]
     Dosage: ORAL
     Route: 048
  2. CLONIDINE [Suspect]
  3. ACETAMINOPHEN [Suspect]
     Dosage: ORAL
     Route: 048
  4. DILAUDID [Suspect]
     Dosage: ORAL
     Route: 048

REACTIONS (6)
  - ALANINE AMINOTRANSFERASE INCREASED [None]
  - ANGER [None]
  - APNOEA [None]
  - ASPARTATE AMINOTRANSFERASE INCREASED [None]
  - COMA [None]
  - MULTIPLE DRUG OVERDOSE [None]
